FAERS Safety Report 16381658 (Version 1)
Quarter: 2019Q2

REPORT INFORMATION
  Report Type: Spontaneous
  Country: US (occurrence: US)
  Receive Date: 20190603
  Receipt Date: 20190603
  Transmission Date: 20190711
  Serious: Yes (Other)
  Sender: FDA-Public Use
  Company Number: US-BIOGEN-2019BI00744922

PATIENT
  Sex: Male

DRUGS (1)
  1. TECFIDERA [Suspect]
     Active Substance: DIMETHYL FUMARATE
     Indication: MULTIPLE SCLEROSIS
     Route: 065
     Dates: start: 20170303

REACTIONS (6)
  - Product dose omission [Unknown]
  - Haemorrhage intracranial [Unknown]
  - Insomnia [Unknown]
  - Pain in extremity [Unknown]
  - Arthralgia [Recovered/Resolved]
  - Impaired healing [Unknown]
